FAERS Safety Report 14350226 (Version 1)
Quarter: 2018Q1

REPORT INFORMATION
  Report Type: Spontaneous
  Country: US (occurrence: US)
  Receive Date: 20180104
  Receipt Date: 20180104
  Transmission Date: 20180509
  Serious: No
  Sender: FDA-Public Use
  Company Number: US-BAYER-2018-000976

PATIENT
  Sex: Female

DRUGS (3)
  1. CLARITIN [Suspect]
     Active Substance: LORATADINE
     Indication: ASTHMA
     Dosage: UNK
  2. CLARITIN [Suspect]
     Active Substance: LORATADINE
     Indication: COUGH
  3. CLARITIN [Suspect]
     Active Substance: LORATADINE
     Indication: ASTHMA

REACTIONS (4)
  - Circumstance or information capable of leading to medication error [Unknown]
  - Therapeutic response unexpected [Unknown]
  - Product prescribing issue [Unknown]
  - Off label use [Unknown]
